FAERS Safety Report 5603644-4 (Version None)
Quarter: 2008Q1

REPORT INFORMATION
  Report Type: 
  Country: None (occurrence: None)
  Receive Date: 20080123
  Receipt Date: 20080116
  Transmission Date: 20080703
  Serious: Yes (Hospitalization)
  Sender: FDA-Public Use
  Company Number: 022271

PATIENT
  Age: 62 Year
  Sex: Male
  Weight: 49.9 kg

DRUGS (4)
  1. TRIAMTERENE + HYDROCHLOROTHIAZIDE) CAPSULE, 37.5/25MG [Suspect]
     Indication: HYPERTENSION
     Dosage: 1 CAPS, QD; ORAL
     Route: 048
     Dates: start: 20070501, end: 20071214
  2. ATENOLOL [Concomitant]
  3. NEXIUM [Concomitant]
  4. PRAVASTATIN [Concomitant]

REACTIONS (4)
  - DISORIENTATION [None]
  - INAPPROPRIATE ANTIDIURETIC HORMONE SECRETION [None]
  - IRRITABILITY [None]
  - MENTAL STATUS CHANGES [None]
